FAERS Safety Report 14421221 (Version 4)
Quarter: 2018Q3

REPORT INFORMATION
  Report Type: Spontaneous
  Country: US (occurrence: US)
  Receive Date: 20180122
  Receipt Date: 20180719
  Transmission Date: 20181010
  Serious: No
  Sender: FDA-Public Use
  Company Number: US-ACTELION-A-NJ2018-166170

PATIENT
  Age: 40 Year
  Sex: Female

DRUGS (2)
  1. VELETRI [Suspect]
     Active Substance: EPOPROSTENOL
     Indication: PULMONARY ARTERIAL HYPERTENSION
     Dosage: 93 NG/KG, PER MIN
     Route: 042
     Dates: start: 20170526
  2. VELETRI [Suspect]
     Active Substance: EPOPROSTENOL
     Dosage: 97 NG/KG, PER MIN
     Route: 042

REACTIONS (9)
  - Dyspnoea [Unknown]
  - Malaise [Unknown]
  - Nausea [Unknown]
  - Throat irritation [Unknown]
  - Pain in jaw [Unknown]
  - Upper-airway cough syndrome [Unknown]
  - Fluid retention [Recovering/Resolving]
  - Retching [Recovered/Resolved]
  - Flushing [Unknown]

NARRATIVE: CASE EVENT DATE: 20180107
